FAERS Safety Report 17369972 (Version 2)
Quarter: 2020Q1

REPORT INFORMATION
  Report Type: Report from Study
  Country: CA (occurrence: CA)
  Receive Date: 20200205
  Receipt Date: 20200207
  Transmission Date: 20200409
  Serious: Yes (Other)
  Sender: FDA-Public Use
  Company Number: CA-EMD SERONO-9144037

PATIENT
  Sex: Female

DRUGS (1)
  1. REBIF [Suspect]
     Active Substance: INTERFERON BETA-1A
     Indication: PRODUCT USED FOR UNKNOWN INDICATION
     Dosage: REBIF MANUAL SYRINGE
     Route: 058
     Dates: start: 20071221

REACTIONS (2)
  - Myocardial infarction [Recovered/Resolved]
  - Arteriospasm coronary [Recovered/Resolved]
